FAERS Safety Report 11216215 (Version 1)
Quarter: 2015Q2

REPORT INFORMATION
  Report Type: Spontaneous
  Country: DK (occurrence: DK)
  Receive Date: 20150624
  Receipt Date: 20150624
  Transmission Date: 20150821
  Serious: Yes (Hospitalization, Other)
  Sender: FDA-Public Use
  Company Number: DK-TEVA-571001ISR

PATIENT
  Age: 38 Year
  Sex: Male

DRUGS (4)
  1. ALDACTONE [Suspect]
     Active Substance: SPIRONOLACTONE
     Indication: HYPERTENSION
     Dosage: 25 MILLIGRAM DAILY;
     Route: 048
     Dates: start: 20121025
  2. AMLODIPIN [Concomitant]
     Active Substance: AMLODIPINE BESYLATE
  3. CENTYL [Concomitant]
  4. LOSARTAN POTASSIUM TEVA [Suspect]
     Active Substance: LOSARTAN POTASSIUM
     Indication: HYPERTENSION
     Route: 048

REACTIONS (8)
  - Blood potassium increased [Unknown]
  - Acid base balance abnormal [Unknown]
  - Glomerulonephropathy [Unknown]
  - Dialysis [Not Recovered/Not Resolved]
  - Renal vascular thrombosis [Unknown]
  - Acute kidney injury [Not Recovered/Not Resolved]
  - Blood creatine increased [Unknown]
  - Malignant hypertension [Unknown]

NARRATIVE: CASE EVENT DATE: 20120807
